FAERS Safety Report 7170014-X (Version None)
Quarter: 2010Q4

REPORT INFORMATION
  Report Type: 
  Country: None (occurrence: None)
  Receive Date: 20101214
  Receipt Date: 20101214
  Transmission Date: 20110411
  Serious: Yes (Hospitalization)
  Sender: FDA-Public Use
  Company Number: None

PATIENT
  Sex: Male

DRUGS (14)
  1. RANIBIZUMAB 2.0 MG GENENTECH (SAE UNRELATED TO DRUG) [Suspect]
     Indication: MACULAR DEGENERATION
     Dosage: 0.05ML PRN IVT
     Route: 042
     Dates: start: 20100702
  2. RANIBIZUMAB 2.0 MG GENENTECH (SAE UNRELATED TO DRUG) [Suspect]
     Indication: MACULAR DEGENERATION
     Dosage: 0.05ML PRN IVT
     Route: 042
     Dates: start: 20100730
  3. RANIBIZUMAB 2.0 MG GENENTECH (SAE UNRELATED TO DRUG) [Suspect]
     Indication: MACULAR DEGENERATION
     Dosage: 0.05ML PRN IVT
     Route: 042
     Dates: start: 20100830
  4. RANIBIZUMAB 2.0 MG GENENTECH (SAE UNRELATED TO DRUG) [Suspect]
     Indication: MACULAR DEGENERATION
     Dosage: 0.05ML PRN IVT
     Route: 042
     Dates: start: 20100930
  5. RANIBIZUMAB 2.0 MG GENENTECH (SAE UNRELATED TO DRUG) [Suspect]
  6. METAMUCIL-2 [Concomitant]
  7. LASIX [Concomitant]
  8. PROTONIX [Concomitant]
  9. SINEMET [Concomitant]
  10. LYRICA [Concomitant]
  11. SYNTHROID [Concomitant]
  12. KLOR-CON [Concomitant]
  13. NORVASC [Concomitant]
  14. B12 VITAMIN [Concomitant]

REACTIONS (1)
  - GASTROINTESTINAL HAEMORRHAGE [None]
